FAERS Safety Report 19761938 (Version 1)
Quarter: 2021Q3

REPORT INFORMATION
  Report Type: Spontaneous
  Country: SG (occurrence: SG)
  Receive Date: 20210829
  Receipt Date: 20210829
  Transmission Date: 20211014
  Serious: Yes (Hospitalization, Disabling, Other)
  Sender: FDA-Public Use
  Company Number: None

PATIENT
  Age: 5 Year
  Sex: Female

DRUGS (4)
  1. CORTIZONE 10 [Suspect]
     Active Substance: HYDROCORTISONE
  2. BETAMETHASONE. [Suspect]
     Active Substance: BETAMETHASONE
  3. HYDROCORTISONE. [Suspect]
     Active Substance: HYDROCORTISONE
  4. DESONIDE. [Suspect]
     Active Substance: DESONIDE
     Indication: ECZEMA
     Dates: start: 20160601

REACTIONS (3)
  - Eczema [None]
  - Drug withdrawal syndrome [None]
  - Drug dependence [None]

NARRATIVE: CASE EVENT DATE: 20200801
